APPROVED DRUG PRODUCT: SYNOPHYLATE
Active Ingredient: THEOPHYLLINE SODIUM GLYCINATE
Strength: EQ 165MG BASE/15ML
Dosage Form/Route: ELIXIR;ORAL
Application: N006333 | Product #008
Applicant: CENTRAL PHARMACEUTICALS INC
Approved: Approved Prior to Jan 1, 1982 | RLD: No | RS: No | Type: DISCN